FAERS Safety Report 24284772 (Version 1)
Quarter: 2024Q3

REPORT INFORMATION
  Report Type: Other
  Country: CA (occurrence: CA)
  Receive Date: 20240905
  Receipt Date: 20240905
  Transmission Date: 20241016
  Serious: Yes (Other)
  Sender: APOTEX
  Company Number: CA-APOTEX-2024AP010105

PATIENT
  Age: 71 Year
  Sex: Male

DRUGS (1)
  1. ALBUTEROL [Suspect]
     Active Substance: ALBUTEROL
     Indication: Product used for unknown indication
     Dosage: UNK
     Route: 065

REACTIONS (5)
  - Increased bronchial secretion [Unknown]
  - Productive cough [Unknown]
  - Pulmonary congestion [Unknown]
  - Asthenia [Unknown]
  - Cough [Unknown]
